FAERS Safety Report 5188260-3 (Version None)
Quarter: 2006Q4

REPORT INFORMATION
  Report Type: 
  Country: None (occurrence: None)
  Receive Date: 20061221
  Receipt Date: 20060921
  Transmission Date: 20070319
  Serious: Yes (Life-Threatening)
  Sender: FDA-Public Use
  Company Number: BE-GLAXOSMITHKLINE-B0439766A

PATIENT
  Age: 64 Year
  Sex: Male
  Weight: 85 kg

DRUGS (5)
  1. AVANDIA [Suspect]
     Indication: DIABETES MELLITUS NON-INSULIN-DEPENDENT
     Dosage: 4MG PER DAY
     Route: 048
     Dates: start: 20040902, end: 20060306
  2. GLIMEPIRIDE [Concomitant]
     Dosage: 3MG PER DAY
     Route: 048
     Dates: start: 20040602
  3. GLUCOPHAGE [Concomitant]
     Dosage: 850UNIT TWICE PER DAY
     Route: 048
     Dates: start: 19980301
  4. FENOFIBRATE [Concomitant]
     Dosage: 267UNIT PER DAY
     Route: 048
     Dates: start: 20060306
  5. CRESTOR [Concomitant]
     Dosage: 10MG PER DAY
     Route: 048
     Dates: start: 20060306

REACTIONS (5)
  - BLOOD TRIGLYCERIDES INCREASED [None]
  - HEPATIC STEATOSIS [None]
  - HIGH DENSITY LIPOPROTEIN DECREASED [None]
  - HYPERGLYCAEMIA [None]
  - TRANSAMINASES INCREASED [None]
